FAERS Safety Report 6574590-7 (Version None)
Quarter: 2010Q1

REPORT INFORMATION
  Report Type: 
  Country: None (occurrence: None)
  Receive Date: 20100209
  Receipt Date: 20100127
  Transmission Date: 20100710
  Serious: Yes (Hospitalization)
  Sender: FDA-Public Use
  Company Number: US-TYCO HEALTHCARE/MALLINCKRODT-T201000544

PATIENT
  Sex: Male
  Weight: 112.2 kg

DRUGS (9)
  1. METHYLIN [Suspect]
     Dosage: 20 MG, TID
     Route: 048
     Dates: start: 19960101, end: 20090101
  2. CYMBALTA [Concomitant]
     Dosage: 30 MG, UNK
  3. CLONAZEPAM [Concomitant]
     Dosage: 0.5 MG, UNK
  4. ABILIFY [Concomitant]
     Dosage: 2 MG, UNK
  5. PRAVASTATIN [Concomitant]
     Dosage: 40 MG, UNK
  6. ZOLPIDEM [Concomitant]
     Indication: SLEEP DISORDER
     Dosage: 10 MG, UNK
  7. RAMIPRIL [Concomitant]
     Dosage: 5 MG, UNK
  8. BUPROPION [Concomitant]
     Dosage: UNK
  9. METOPROLOL TARTRATE [Concomitant]
     Dosage: 26 MG, UNK

REACTIONS (5)
  - INTENTIONAL DRUG MISUSE [None]
  - MYOCARDIAL INFARCTION [None]
  - OFF LABEL USE [None]
  - PANIC ATTACK [None]
  - SELF-MEDICATION [None]
